FAERS Safety Report 9660626 (Version 1)
Quarter: 2013Q4

REPORT INFORMATION
  Report Type: Spontaneous
  Country: US (occurrence: US)
  Receive Date: 20131031
  Receipt Date: 20131031
  Transmission Date: 20140711
  Serious: Yes (Hospitalization, Other)
  Sender: FDA-Public Use
  Company Number: US-RB-060098-13

PATIENT
  Age: 0 Year
  Sex: Female

DRUGS (2)
  1. SUBOXONE FILM [Suspect]
     Indication: DRUG DEPENDENCE
     Dosage: SUBOXONE FILM; MOTHER WAS TAKING VARIOUS DOSES OF FILM
     Route: 064
     Dates: start: 2012, end: 20120629
  2. NICOTINE [Suspect]
     Indication: NICOTINE DEPENDENCE
     Dosage: 10 CIGARETTES DAILY
     Route: 064
     Dates: end: 20120629

REACTIONS (4)
  - Foetal exposure during pregnancy [Recovered/Resolved]
  - Drug withdrawal syndrome neonatal [Recovered/Resolved]
  - Speech disorder developmental [Not Recovered/Not Resolved]
  - Psychomotor skills impaired [Not Recovered/Not Resolved]
